FAERS Safety Report 9197627 (Version 1)
Quarter: 2013Q1

REPORT INFORMATION
  Report Type: Spontaneous
  Country: US (occurrence: US)
  Receive Date: 20130328
  Receipt Date: 20130328
  Transmission Date: 20140127
  Serious: Yes (Hospitalization, Other)
  Sender: FDA-Public Use
  Company Number: US-BAYER-2013-036105

PATIENT
  Age: 18 Year
  Sex: Female

DRUGS (8)
  1. YASMIN [Suspect]
  2. DESMOPRESSIN [Concomitant]
     Dosage: 0.1 MG, EVERY MORNING AND TWO EVERY NIGHT AT BEDTIME
     Route: 048
  3. LEVOXYL [Concomitant]
     Dosage: 0.15 MG, ONE EVERY DAY
     Route: 048
  4. SYNTHROID [Concomitant]
     Dosage: 0.15, ONE EVERY DAY
     Route: 048
  5. ALLEGRA [Concomitant]
     Dosage: 180 MG, ONE EVERY DAY
     Route: 048
  6. MULTIVITAMINS [Concomitant]
  7. CALCIUM [Concomitant]
  8. DDAVP [Concomitant]

REACTIONS (2)
  - Cholelithiasis [None]
  - Pulmonary embolism [None]
